FAERS Safety Report 24850464 (Version 1)
Quarter: 2025Q1

REPORT INFORMATION
  Report Type: Spontaneous
  Country: US (occurrence: US)
  Receive Date: 20250116
  Receipt Date: 20250116
  Transmission Date: 20250409
  Serious: No
  Sender: SK LIFE SCIENCE
  Company Number: US-SK LIFE SCIENCE, INC-SKPVG-2024-000046

PATIENT

DRUGS (13)
  1. XCOPRI [Suspect]
     Active Substance: CENOBAMATE
     Indication: Epilepsy
     Route: 065
  2. XCOPRI [Suspect]
     Active Substance: CENOBAMATE
     Route: 065
  3. XCOPRI [Suspect]
     Active Substance: CENOBAMATE
     Route: 065
  4. XCOPRI [Suspect]
     Active Substance: CENOBAMATE
     Route: 065
  5. XCOPRI [Suspect]
     Active Substance: CENOBAMATE
     Route: 065
  6. XCOPRI [Suspect]
     Active Substance: CENOBAMATE
     Route: 065
  7. XCOPRI [Suspect]
     Active Substance: CENOBAMATE
     Route: 065
  8. XCOPRI [Suspect]
     Active Substance: CENOBAMATE
     Route: 065
  9. XCOPRI [Suspect]
     Active Substance: CENOBAMATE
     Route: 065
  10. XCOPRI [Suspect]
     Active Substance: CENOBAMATE
     Route: 065
  11. XCOPRI [Suspect]
     Active Substance: CENOBAMATE
     Route: 065
  12. XCOPRI [Suspect]
     Active Substance: CENOBAMATE
     Route: 065
  13. XCOPRI [Suspect]
     Active Substance: CENOBAMATE
     Dosage: 300MG DAILY; SHE TAKES ONE 100MG AND ONE 200MG TABLET
     Route: 065

REACTIONS (1)
  - Gait inability [Recovered/Resolved]
